FAERS Safety Report 5205450-1 (Version None)
Quarter: 2007Q1

REPORT INFORMATION
  Report Type: 
  Country: None (occurrence: None)
  Receive Date: 20070110
  Receipt Date: 20070108
  Transmission Date: 20070707
  Serious: Yes (Hospitalization)
  Sender: FDA-Public Use
  Company Number: AU-ALLERGAN-0700140US

PATIENT
  Sex: Female

DRUGS (1)
  1. BOTOX [Suspect]
     Indication: STRABISMUS
     Dosage: UNK, SINGLE
     Route: 030

REACTIONS (7)
  - APHONIA [None]
  - DRUG INEFFECTIVE [None]
  - DYSPHAGIA [None]
  - FALL [None]
  - INFLUENZA [None]
  - RASH [None]
  - SYNCOPE [None]
